FAERS Safety Report 19105478 (Version 1)
Quarter: 2021Q2

REPORT INFORMATION
  Report Type: Spontaneous
  Country: CA (occurrence: CA)
  Receive Date: 20210408
  Receipt Date: 20210408
  Transmission Date: 20210717
  Serious: Yes (Hospitalization, Other)
  Sender: FDA-Public Use
  Company Number: CA-JNJFOC-20210359768

PATIENT
  Age: 42 Year
  Sex: Female

DRUGS (11)
  1. BETASERON [Suspect]
     Active Substance: INTERFERON BETA-1B
     Dosage: UNK
     Dates: start: 202012
  2. DILAUDID [Concomitant]
     Active Substance: HYDROMORPHONE HYDROCHLORIDE
  3. TYLENOL [Concomitant]
     Active Substance: ACETAMINOPHEN
     Dosage: 500 MG
  4. PAROXETINE/TEVA [Concomitant]
  5. RIVAROXABAN [Suspect]
     Active Substance: RIVAROXABAN
     Indication: PRODUCT USED FOR UNKNOWN INDICATION
     Route: 048
  6. AMIODARONE [Concomitant]
     Active Substance: AMIODARONE
  7. BETASERON [Suspect]
     Active Substance: INTERFERON BETA-1B
     Dosage: 0.25 MG
     Route: 058
     Dates: start: 19990801, end: 20201209
  8. DOCUSATE SODIUM. [Concomitant]
     Active Substance: DOCUSATE SODIUM
  9. MINOCYCLINE [Concomitant]
     Active Substance: MINOCYCLINE HYDROCHLORIDE
  10. VAGIFEM [Concomitant]
     Active Substance: ESTRADIOL
  11. CLONAZEPAM. [Concomitant]
     Active Substance: CLONAZEPAM

REACTIONS (20)
  - Chills [Unknown]
  - Pain [Unknown]
  - Myalgia [Unknown]
  - Discomfort [Unknown]
  - Adverse drug reaction [Not Recovered/Not Resolved]
  - Pyrexia [Unknown]
  - Eye haemorrhage [Unknown]
  - Depressed mood [Unknown]
  - Injection site reaction [Not Recovered/Not Resolved]
  - Injection site erythema [Not Recovered/Not Resolved]
  - Feeling cold [Unknown]
  - Liver operation [Unknown]
  - Injection site erythema [Not Recovered/Not Resolved]
  - Injection site paraesthesia [Not Recovered/Not Resolved]
  - Poor quality sleep [Unknown]
  - Injection site erythema [Not Recovered/Not Resolved]
  - Injection site pain [Not Recovered/Not Resolved]
  - Injection site paraesthesia [Recovered/Resolved]
  - Headache [Unknown]
  - Contusion [Unknown]

NARRATIVE: CASE EVENT DATE: 19990801
